FAERS Safety Report 12269520 (Version 1)
Quarter: 2016Q2

REPORT INFORMATION
  Report Type: Spontaneous
  Country: SE (occurrence: SE)
  Receive Date: 20160414
  Receipt Date: 20160414
  Transmission Date: 20160815
  Serious: Yes (Hospitalization)
  Sender: FDA-Public Use
  Company Number: SE-TEVA-649971ISR

PATIENT
  Age: 77 Year
  Sex: Female

DRUGS (2)
  1. METHOTREXATE [Suspect]
     Active Substance: METHOTREXATE
     Route: 042
  2. MABTHERA [Suspect]
     Active Substance: RITUXIMAB

REACTIONS (2)
  - Pancytopenia [Unknown]
  - Blood immunoglobulin G decreased [Unknown]
